FAERS Safety Report 6108730-0 (Version None)
Quarter: 2009Q1

REPORT INFORMATION
  Report Type: 
  Country: None (occurrence: None)
  Receive Date: 20090306
  Receipt Date: 20090306
  Transmission Date: 20090719
  Serious: No
  Sender: FDA-Public Use
  Company Number: None

PATIENT
  Age: 60 Year
  Sex: Male
  Weight: 98.8842 kg

DRUGS (6)
  1. AVELOX [Suspect]
     Indication: SINUSITIS
     Dosage: 400 MG ONCE DAILY P.O.
     Route: 048
     Dates: start: 20090212, end: 20090219
  2. PREDNISONE [Concomitant]
  3. IBUPROFEN TABLETS [Concomitant]
  4. FLUTICASONE PROPIONATE [Concomitant]
  5. ALBUTEROL [Concomitant]
  6. ASTELIN [Concomitant]

REACTIONS (3)
  - AGITATION [None]
  - ANXIETY [None]
  - NERVOUSNESS [None]
